FAERS Safety Report 6828627-8 (Version None)
Quarter: 2010Q3

REPORT INFORMATION
  Report Type: 
  Country: None (occurrence: None)
  Receive Date: 20100709
  Receipt Date: 20070215
  Transmission Date: 20110219
  Serious: No
  Sender: FDA-Public Use
  Company Number: US-PFIZER INC-2007013856

PATIENT
  Sex: Female
  Weight: 66.22 kg

DRUGS (5)
  1. CHANTIX [Suspect]
     Indication: SMOKING CESSATION THERAPY
     Dates: start: 20070208
  2. BACTRIM [Suspect]
     Dates: start: 20070208
  3. XANAX [Concomitant]
  4. PROZAC [Concomitant]
  5. COUGH SYRUP [Concomitant]

REACTIONS (2)
  - PRURITUS [None]
  - RASH ERYTHEMATOUS [None]
